FAERS Safety Report 13752655 (Version 18)
Quarter: 2018Q2

REPORT INFORMATION
  Report Type: Report from Study
  Country: US (occurrence: US)
  Receive Date: 20170713
  Receipt Date: 20180430
  Transmission Date: 20180711
  Serious: Yes (Death, Hospitalization, Other)
  Sender: FDA-Public Use
  Company Number: US-ACTELION-A-NJ2015-121943

PATIENT
  Age: 53 Year
  Sex: Male
  Weight: 87.75 kg

DRUGS (6)
  1. VELETRI [Suspect]
     Active Substance: EPOPROSTENOL
     Dosage: 8 NG/KG, PER MIN
     Route: 042
     Dates: start: 20150709
  2. VELETRI [Suspect]
     Active Substance: EPOPROSTENOL
     Dosage: 12 NG/KG, PER MIN
     Route: 042
     Dates: start: 20150709
  3. NUCYNTA [Suspect]
     Active Substance: TAPENTADOL HYDROCHLORIDE
     Indication: PRODUCT USED FOR UNKNOWN INDICATION
     Route: 065
  4. VELETRI [Suspect]
     Active Substance: EPOPROSTENOL
     Indication: PULMONARY ARTERIAL HYPERTENSION
     Dosage: 24 NG/KG, PER MIN
     Route: 042
  5. VELETRI [Suspect]
     Active Substance: EPOPROSTENOL
     Dosage: UNK
     Route: 042
  6. DOXYCYCLINE. [Suspect]
     Active Substance: DOXYCYCLINE
     Indication: PRODUCT USED FOR UNKNOWN INDICATION
     Dosage: UNK
     Route: 065

REACTIONS (37)
  - Death [Fatal]
  - Migraine [Unknown]
  - Feeling abnormal [Unknown]
  - Depression [Unknown]
  - Weight decreased [Unknown]
  - Tachycardia [Unknown]
  - Pain [Unknown]
  - Dental care [Unknown]
  - Fall [Unknown]
  - Limb discomfort [Unknown]
  - Rash [Unknown]
  - Tooth fracture [Unknown]
  - Fibromyalgia [Unknown]
  - Malaise [Unknown]
  - Somnolence [Recovered/Resolved]
  - Tooth infection [Unknown]
  - Limb injury [Unknown]
  - Seasonal allergy [Unknown]
  - Nausea [Unknown]
  - Road traffic accident [Unknown]
  - Seizure [Unknown]
  - Hypoxia [Unknown]
  - Memory impairment [Unknown]
  - Skin graft [Unknown]
  - Myalgia [Unknown]
  - Hypoaesthesia [Unknown]
  - Fracture [Unknown]
  - Ocular hyperaemia [Unknown]
  - Nervousness [Unknown]
  - Vomiting [Recovering/Resolving]
  - Tremor [Unknown]
  - Hallucination [Unknown]
  - Pain in jaw [Recovered/Resolved]
  - Pain in extremity [Unknown]
  - Skin ulcer [Unknown]
  - Hypersensitivity [Unknown]
  - Unevaluable event [Unknown]

NARRATIVE: CASE EVENT DATE: 201706
